FAERS Safety Report 4403860-3 (Version None)
Quarter: 2004Q3

REPORT INFORMATION
  Report Type: 
  Country: None (occurrence: None)
  Receive Date: 20040719
  Receipt Date: 20040706
  Transmission Date: 20050211
  Serious: Yes (Hospitalization)
  Sender: FDA-Public Use
  Company Number: 2004038396

PATIENT
  Age: 69 Year
  Sex: Female

DRUGS (4)
  1. CITALOR (ATORVASTATIN) [Suspect]
     Indication: HYPERCHOLESTEROLAEMIA
     Dosage: 1 IN 1 D, ORAL
     Route: 048
  2. DRUG, UNSPECIFIED (DRUG, UNSPECIFIED) [Suspect]
     Indication: INFLAMMATION
     Dates: start: 20040529
  3. CHLORTALIDONE (CHLORTALIDONE) [Concomitant]
  4. CIPROFLOXACIN [Concomitant]

REACTIONS (3)
  - ANKLE FRACTURE [None]
  - DYSPEPSIA [None]
  - OPEN FRACTURE [None]
